FAERS Safety Report 10006451 (Version 2)
Quarter: 2014Q2

REPORT INFORMATION
  Report Type: Report from Study
  Country: GB (occurrence: GB)
  Receive Date: 20140313
  Receipt Date: 20140609
  Transmission Date: 20141212
  Serious: Yes (Other)
  Sender: FDA-Public Use
  Company Number: GB-TEVA-468437ISR

PATIENT
  Age: 47 Year
  Sex: Male
  Weight: 106.4 kg

DRUGS (3)
  1. COPAXONE [Suspect]
     Indication: RELAPSING-REMITTING MULTIPLE SCLEROSIS
     Dosage: 20 MILLIGRAM DAILY;
     Route: 058
     Dates: start: 20140207, end: 20140216
  2. COPAXONE [Suspect]
     Dosage: 20 MILLIGRAM DAILY;
     Route: 057
     Dates: start: 20140304, end: 20140304
  3. MITOXANTRONE [Concomitant]
     Indication: MULTIPLE SCLEROSIS
     Dosage: MONTHLY FOR THREE MONTHS. FURTHER DOSE AT 6 MONTHS
     Route: 042
     Dates: start: 20130829, end: 20140207

REACTIONS (4)
  - Paralysis [Recovered/Resolved]
  - Skin reaction [Recovered/Resolved]
  - Hyperhidrosis [Recovered/Resolved]
  - Myalgia [Recovered/Resolved]
